FAERS Safety Report 7469483-7 (Version None)
Quarter: 2011Q2

REPORT INFORMATION
  Report Type: 
  Country: None (occurrence: None)
  Receive Date: 20110506
  Receipt Date: 20110506
  Transmission Date: 20111010
  Serious: Yes (Death, Life-Threatening, Hospitalization, Disabling)
  Sender: FDA-Public Use
  Company Number: None

PATIENT

DRUGS (5)
  1. OLANZAPINE [Suspect]
     Dosage: EXCESSIVE
     Dates: start: 20070615, end: 20110418
  2. DIPHENHYDRAMINE HCL [Suspect]
     Indication: CRIME
  3. BENZTROPINE MESYLATE [Suspect]
     Dosage: EXCESSIVE
     Dates: start: 20070615, end: 20110418
  4. LORAZEPAM [Suspect]
     Indication: CRIME
  5. HALOPERIDOL [Suspect]
     Dosage: EXCESSIVE
     Dates: start: 20070615, end: 20110418

REACTIONS (1)
  - SOMNOLENCE [None]
